FAERS Safety Report 4952317-X (Version None)
Quarter: 2006Q1

REPORT INFORMATION
  Report Type: 
  Country: None (occurrence: None)
  Receive Date: 20060131
  Receipt Date: 20050127
  Transmission Date: 20060701
  Serious: Yes (Other)
  Sender: FDA-Public Use
  Company Number: WAES 0501USA04283

PATIENT
  Age: 52 Year
  Sex: Female

DRUGS (2)
  1. INVANZ [Suspect]
     Indication: ABDOMINAL OPERATION
     Dosage: 1 GM DAILY IV
     Route: 042
  2. DEMEROL [Concomitant]

REACTIONS (1)
  - CONVULSION [None]
